FAERS Safety Report 4705423-9 (Version None)
Quarter: 2005Q3

REPORT INFORMATION
  Report Type: 
  Country: None (occurrence: None)
  Receive Date: 20050701
  Receipt Date: 20050520
  Transmission Date: 20060218
  Serious: Yes (Hospitalization)
  Sender: FDA-Public Use
  Company Number: JP-GLAXOSMITHKLINE-B0381990A

PATIENT
  Age: 76 Year
  Sex: Female
  Weight: 62 kg

DRUGS (9)
  1. VALTREX [Suspect]
     Indication: HERPES ZOSTER
     Dosage: 1000MG THREE TIMES PER DAY
     Route: 048
     Dates: start: 20050510, end: 20050512
  2. AMARYL [Concomitant]
     Dosage: 3MG PER DAY
     Route: 048
  3. ACTOS [Concomitant]
     Dosage: 30MG PER DAY
     Route: 048
  4. ADALAT [Concomitant]
     Dosage: 40MG PER DAY
     Route: 048
  5. MEVALOTIN [Concomitant]
     Dosage: 1TAB PER DAY
     Route: 048
  6. BLOPRESS [Concomitant]
     Dosage: 1TAB PER DAY
     Route: 048
  7. GOREISAN [Concomitant]
     Dosage: 6G PER DAY
     Route: 048
     Dates: start: 20050510, end: 20050512
  8. MAO-BUSHI-SAISHIN-TO [Concomitant]
     Dosage: 7.5G PER DAY
     Route: 048
     Dates: start: 20050511, end: 20050512
  9. ARASENA-A [Concomitant]
     Dosage: 2G PER DAY
     Route: 061
     Dates: start: 20050510

REACTIONS (6)
  - BLOOD CREATININE INCREASED [None]
  - CHILLS [None]
  - CONDITION AGGRAVATED [None]
  - DIZZINESS [None]
  - PYREXIA [None]
  - RENAL FAILURE ACUTE [None]
